FAERS Safety Report 8596730-0 (Version None)
Quarter: 2012Q3

REPORT INFORMATION
  Report Type: 
  Country: None (occurrence: None)
  Receive Date: 20120815
  Receipt Date: 20120802
  Transmission Date: 20120928
  Serious: No
  Sender: FDA-Public Use
  Company Number: US-ASTRAZENECA-2012SE55149

PATIENT
  Age: 60 Year
  Sex: Female

DRUGS (12)
  1. SINGULAIR [Concomitant]
     Route: 048
     Dates: start: 20091208
  2. PREDNISONE TAB [Concomitant]
     Dosage: ONE TO TWO TABLETS PER DAY
     Route: 048
     Dates: start: 20120718
  3. CYMBALTA [Concomitant]
     Route: 048
     Dates: start: 20120209
  4. LASIX [Concomitant]
     Route: 048
     Dates: start: 20120718
  5. PREDNISONE TAB [Concomitant]
     Route: 048
  6. PREDNISONE TAB [Concomitant]
     Route: 048
  7. ALLOPURINOL [Concomitant]
     Route: 048
     Dates: start: 20120718
  8. ADVAIR DISKUS 100/50 [Concomitant]
     Dosage: 500/50 MCG ONE PUFF INHALED TWO TIMES A DAY
     Route: 055
     Dates: start: 20091208
  9. ETODOLAC [Concomitant]
     Indication: PAIN
     Route: 048
     Dates: start: 20120112
  10. PREDNISONE TAB [Concomitant]
     Route: 048
  11. NEXIUM [Suspect]
     Route: 048
     Dates: start: 20100720
  12. PREDNISONE TAB [Concomitant]
     Route: 048

REACTIONS (7)
  - CYSTOCELE [None]
  - POLYNEUROPATHY [None]
  - ABDOMINAL PAIN UPPER [None]
  - DYSPNOEA [None]
  - GOUT [None]
  - CHEST PAIN [None]
  - ESSENTIAL HYPERTENSION [None]
